FAERS Safety Report 6801348-3 (Version None)
Quarter: 2010Q2

REPORT INFORMATION
  Report Type: 
  Country: None (occurrence: None)
  Receive Date: 20100629
  Receipt Date: 20100621
  Transmission Date: 20101027
  Serious: Yes (Other)
  Sender: FDA-Public Use
  Company Number: A0858564A

PATIENT
  Age: 56 Year
  Sex: Female

DRUGS (5)
  1. PROMACTA [Suspect]
     Indication: PANCYTOPENIA
     Route: 048
     Dates: start: 20090501, end: 20090801
  2. CORTICOSTEROIDS [Concomitant]
  3. CHEMOTHERAPY [Concomitant]
  4. OXYCODONE HCL [Concomitant]
  5. PEPCID [Concomitant]

REACTIONS (5)
  - CHROMATURIA [None]
  - DRUG INEFFECTIVE [None]
  - EMBOLISM [None]
  - HEPATITIS C [None]
  - LIVER DISORDER [None]
